FAERS Safety Report 17089195 (Version 1)
Quarter: 2019Q4

REPORT INFORMATION
  Report Type: Report from Study
  Country: CR (occurrence: CR)
  Receive Date: 20191128
  Receipt Date: 20191128
  Transmission Date: 20200122
  Serious: Yes (Other)
  Sender: FDA-Public Use
  Company Number: NVSC2019CR043975

PATIENT
  Age: 66 Year
  Sex: Male

DRUGS (1)
  1. DIOVAN [Suspect]
     Active Substance: VALSARTAN
     Indication: PRODUCT USED FOR UNKNOWN INDICATION
     Dosage: 320 MG, BID (ONE IN THE MORNING AND THE OTHER AT NIGHT)
     Route: 065

REACTIONS (3)
  - Renal failure [Unknown]
  - Incorrect dose administered [Unknown]
  - Visual impairment [Unknown]
